FAERS Safety Report 5254852-6 (Version None)
Quarter: 2007Q1

REPORT INFORMATION
  Report Type: 
  Country: None (occurrence: None)
  Receive Date: 20070305
  Receipt Date: 20070219
  Transmission Date: 20070707
  Serious: Yes (Life-Threatening)
  Sender: FDA-Public Use
  Company Number: IT-BRISTOL-MYERS SQUIBB COMPANY-13693403

PATIENT
  Age: 54 Year
  Sex: Female

DRUGS (2)
  1. IFOSFAMIDE [Suspect]
     Indication: SARCOMA UTERUS
     Route: 042
     Dates: start: 20070123, end: 20070127
  2. DOXORUBICIN HCL [Concomitant]
     Route: 040
     Dates: start: 20070123, end: 20070124

REACTIONS (1)
  - OESOPHAGITIS [None]
